FAERS Safety Report 6568738-8 (Version None)
Quarter: 2010Q1

REPORT INFORMATION
  Report Type: 
  Country: None (occurrence: None)
  Receive Date: 20100203
  Receipt Date: 20100119
  Transmission Date: 20100710
  Serious: Yes (Other)
  Sender: FDA-Public Use
  Company Number: PHHY2010CA03386

PATIENT

DRUGS (10)
  1. RASILEZ [Suspect]
  2. NORVASC [Concomitant]
  3. ZESTRIL [Concomitant]
     Dates: start: 20090420
  4. COZAAR [Concomitant]
     Dosage: UNK
     Dates: start: 20090529
  5. HYDROCHLOROTHIAZIDE W/LOSARTAN [Concomitant]
     Dosage: UNK
     Dates: start: 20090805
  6. METFORMIN HCL [Concomitant]
     Dosage: 500 MG, BID
  7. ALLOPURINOL [Concomitant]
     Dosage: 200 MG
  8. GLUCOSAMINE [Concomitant]
     Dosage: 1 MG, TID
  9. BISOPROLOL [Concomitant]
     Dosage: 5 MG, QD
  10. ADALAT [Concomitant]
     Dosage: 60 MG, QD

REACTIONS (2)
  - CREATININE RENAL CLEARANCE DECREASED [None]
  - RENAL IMPAIRMENT [None]
